FAERS Safety Report 10239720 (Version 2)
Quarter: 2014Q2

REPORT INFORMATION
  Report Type: Report from Study
  Country: US (occurrence: US)
  Receive Date: 20140616
  Receipt Date: 20140630
  Transmission Date: 20141212
  Serious: Yes (Hospitalization, Other)
  Sender: FDA-Public Use
  Company Number: US-ACTELION-A-NJ2014-100195

PATIENT
  Age: 2 Year
  Sex: Female

DRUGS (2)
  1. TRACLEER [Suspect]
     Indication: PULMONARY HYPERTENSION
     Dosage: 15.625 MG, BID
     Route: 048
     Dates: start: 20130823
  2. SILDENAFIL [Concomitant]

REACTIONS (3)
  - Tracheostomy [Recovering/Resolving]
  - Tracheal haemorrhage [Recovering/Resolving]
  - Throat irritation [Recovering/Resolving]
